FAERS Safety Report 8989195 (Version 1)
Quarter: 2012Q4

REPORT INFORMATION
  Report Type: 
  Country: US (occurrence: US)
  Receive Date: 20121227
  Receipt Date: 20121227
  Transmission Date: 20130627
  Serious: No
  Sender: FDA-Public Use
  Company Number: US-009507513-1212USA009848

PATIENT
  Sex: Female

DRUGS (4)
  1. DULERA [Suspect]
     Indication: ASTHMA
     Dosage: 2 pumps, bid
     Route: 055
     Dates: start: 201211
  2. DULERA [Suspect]
     Indication: COUGH
  3. LOVASTATIN [Concomitant]
  4. ACTONEL [Concomitant]

REACTIONS (1)
  - Chest pain [Not Recovered/Not Resolved]
